FAERS Safety Report 5281533-5 (Version None)
Quarter: 2007Q1

REPORT INFORMATION
  Report Type: 
  Country: None (occurrence: None)
  Receive Date: 20070330
  Receipt Date: 20070321
  Transmission Date: 20070707
  Serious: Yes (Hospitalization, Other)
  Sender: FDA-Public Use
  Company Number: GB-AVENTIS-200618791GDDC

PATIENT
  Age: 42 Year
  Sex: Male

DRUGS (4)
  1. METRONIDAZOLE [Suspect]
     Dates: start: 20040701
  2. AMOXICILLIN [Concomitant]
     Dates: start: 20040701
  3. LANSOPRAZOLE [Concomitant]
     Dates: start: 20040701
  4. CLARITHROMYCIN [Concomitant]

REACTIONS (1)
  - MENINGITIS ASEPTIC [None]
